FAERS Safety Report 4839142-5 (Version None)
Quarter: 2005Q4

REPORT INFORMATION
  Report Type: 
  Country: None (occurrence: None)
  Receive Date: 20051031
  Receipt Date: 20050829
  Transmission Date: 20060501
  Serious: No
  Sender: FDA-Public Use
  Company Number: 200516629US

PATIENT
  Sex: Female

DRUGS (2)
  1. KETEK [Suspect]
     Indication: EAR INFECTION
     Dosage: 400 MG BID PO
     Route: 049
     Dates: start: 20050827
  2. EAR DROPS NOS [Concomitant]

REACTIONS (1)
  - RASH PRURITIC [None]
